FAERS Safety Report 17163470 (Version 1)
Quarter: 2019Q4

REPORT INFORMATION
  Report Type: Spontaneous
  Country: FR (occurrence: FR)
  Receive Date: 20191217
  Receipt Date: 20191217
  Transmission Date: 20200122
  Serious: Yes (Hospitalization)
  Sender: FDA-Public Use
  Company Number: FR-TEVA-2019-FR-1152266

PATIENT
  Age: 78 Year
  Sex: Female
  Weight: 86.7 kg

DRUGS (7)
  1. CHLORHYDRATE DE NICARDIPINE [Concomitant]
  2. ACIDE VALPROIQUE [Concomitant]
     Active Substance: VALPROIC ACID
  3. VANCOMYCIN [Suspect]
     Active Substance: VANCOMYCIN
     Indication: STAPHYLOCOCCAL SEPSIS
     Dosage: UNKNOWN DOSAGE
     Route: 042
     Dates: start: 20191008, end: 20191009
  4. BRISTOPEN [Suspect]
     Active Substance: OXACILLIN SODIUM
     Indication: STAPHYLOCOCCAL SEPSIS
     Dosage: 8 GRAM
     Route: 042
     Dates: start: 20191009, end: 20191024
  5. PANTOPRAZOLE [Concomitant]
     Active Substance: PANTOPRAZOLE
  6. BISOPROLOL (FUMARATE DE) [Concomitant]
     Active Substance: BISOPROLOL FUMARATE
  7. LEVOTHYROXINE SODIQUE [Concomitant]
     Active Substance: LEVOTHYROXINE SODIUM

REACTIONS (1)
  - Rash maculo-papular [Recovered/Resolved]

NARRATIVE: CASE EVENT DATE: 20191016
